FAERS Safety Report 7576581-6 (Version None)
Quarter: 2011Q2

REPORT INFORMATION
  Report Type: 
  Country: None (occurrence: None)
  Receive Date: 20110624
  Receipt Date: 20110624
  Transmission Date: 20111010
  Serious: Yes (Death)
  Sender: FDA-Public Use
  Company Number: None

PATIENT
  Age: 68 Year
  Sex: Male

DRUGS (5)
  1. PRAVASTATIN [Concomitant]
  2. ALLOPURINOL [Concomitant]
  3. REVLIMID [Suspect]
     Indication: MULTIPLE MYELOMA
     Dosage: REVLIMID 10MG DAILY X21D/28D ORALLY
     Route: 048
     Dates: start: 20100301, end: 20100901
  4. CHOLECALCIFEROL [Concomitant]
  5. ATENOLOL [Concomitant]

REACTIONS (8)
  - BACK PAIN [None]
  - MULTI-ORGAN FAILURE [None]
  - SEPTIC SHOCK [None]
  - ANAEMIA [None]
  - PAIN IN EXTREMITY [None]
  - DISEASE PROGRESSION [None]
  - MULTIPLE MYELOMA [None]
  - GENERAL PHYSICAL HEALTH DETERIORATION [None]
